FAERS Safety Report 5316908-9 (Version None)
Quarter: 2007Q2

REPORT INFORMATION
  Report Type: 
  Country: None (occurrence: None)
  Receive Date: 20070504
  Receipt Date: 20070424
  Transmission Date: 20071010
  Serious: Yes (Hospitalization)
  Sender: FDA-Public Use
  Company Number: DE-GLAXOSMITHKLINE-B0468992A

PATIENT
  Age: 38 Year
  Sex: Female

DRUGS (5)
  1. LITHIUM CARBONATE [Suspect]
     Indication: PROPHYLAXIS
     Route: 065
     Dates: start: 20040701, end: 20060201
  2. RISPERIDONE [Concomitant]
  3. LORAZEPAM [Concomitant]
  4. PIPAMPERONE [Concomitant]
  5. ZOPICLON [Concomitant]

REACTIONS (6)
  - BLOOD CHOLESTEROL INCREASED [None]
  - BLOOD TRIGLYCERIDES INCREASED [None]
  - HEPATIC STEATOSIS [None]
  - HYPERLIPIDAEMIA [None]
  - IMPAIRED FASTING GLUCOSE [None]
  - LIPASE INCREASED [None]
